FAERS Safety Report 7356816-5 (Version None)
Quarter: 2011Q1

REPORT INFORMATION
  Report Type: 
  Country: None (occurrence: None)
  Receive Date: 20110317
  Receipt Date: 20110314
  Transmission Date: 20110831
  Serious: Yes (Hospitalization, Other)
  Sender: FDA-Public Use
  Company Number: IE-ABBOTT-10P-229-0686487-00

PATIENT
  Sex: Female

DRUGS (4)
  1. RALTEGRAVIR [Concomitant]
     Indication: ANTIRETROVIRAL THERAPY
     Dates: start: 20101124
  2. KALETRA [Suspect]
     Indication: HIV INFECTION
     Route: 048
     Dates: start: 20100907, end: 20101022
  3. COMBIVIR [Concomitant]
     Indication: HIV INFECTION
     Route: 048
     Dates: start: 20100907, end: 20101022
  4. TRUVADA [Concomitant]
     Indication: ANTIRETROVIRAL THERAPY
     Dates: start: 20101124

REACTIONS (9)
  - DRUG EXPOSURE DURING PREGNANCY [None]
  - AUTOIMMUNE HEPATITIS [None]
  - ASPARTATE AMINOTRANSFERASE INCREASED [None]
  - CAESAREAN SECTION [None]
  - SEROMA [None]
  - FAECES PALE [None]
  - NAUSEA [None]
  - TRANSAMINASES ABNORMAL [None]
  - VOMITING [None]
